FAERS Safety Report 18961347 (Version 1)
Quarter: 2021Q1

REPORT INFORMATION
  Report Type: Spontaneous
  Country: CA (occurrence: CA)
  Receive Date: 20210303
  Receipt Date: 20210303
  Transmission Date: 20210420
  Serious: Yes (Hospitalization, Other)
  Sender: FDA-Public Use
  Company Number: CA-BIOVITRUM-2021CA1948

PATIENT
  Age: 50 Year
  Sex: Female

DRUGS (33)
  1. CIMETIDINE [Suspect]
     Active Substance: CIMETIDINE
     Indication: COMPLEX REGIONAL PAIN SYNDROME
     Route: 065
  2. RIBOFLAVIN [Suspect]
     Active Substance: RIBOFLAVIN
     Indication: COMPLEX REGIONAL PAIN SYNDROME
     Route: 065
  3. LITHIUM CARBONATE. [Suspect]
     Active Substance: LITHIUM CARBONATE
     Indication: COMPLEX REGIONAL PAIN SYNDROME
     Route: 065
  4. PENTOXIFYLLINE. [Suspect]
     Active Substance: PENTOXIFYLLINE
     Indication: COMPLEX REGIONAL PAIN SYNDROME
     Route: 065
  5. SPIRONOLACTONE. [Suspect]
     Active Substance: SPIRONOLACTONE
     Indication: COMPLEX REGIONAL PAIN SYNDROME
     Route: 065
  6. TRAZODONE [Concomitant]
     Active Substance: TRAZODONE HYDROCHLORIDE
     Indication: INSOMNIA
     Route: 065
  7. IBUDILAST [Suspect]
     Active Substance: IBUDILAST
     Indication: COMPLEX REGIONAL PAIN SYNDROME
     Route: 065
  8. MEMANTINE. [Suspect]
     Active Substance: MEMANTINE
     Indication: COMPLEX REGIONAL PAIN SYNDROME
     Route: 065
  9. MEXILETINE [Suspect]
     Active Substance: MEXILETINE
     Indication: COMPLEX REGIONAL PAIN SYNDROME
     Route: 065
  10. MONTELUKAST [Suspect]
     Active Substance: MONTELUKAST SODIUM
     Indication: COMPLEX REGIONAL PAIN SYNDROME
     Route: 065
  11. NALTREXONE HYDROCHLORIDE. [Suspect]
     Active Substance: NALTREXONE HYDROCHLORIDE
     Indication: COMPLEX REGIONAL PAIN SYNDROME
     Route: 065
  12. PREDNISONE. [Suspect]
     Active Substance: PREDNISONE
     Indication: COMPLEX REGIONAL PAIN SYNDROME
     Route: 065
  13. CALCITONIN [Concomitant]
     Active Substance: CALCITONIN
     Indication: COMPLEX REGIONAL PAIN SYNDROME
     Route: 065
  14. AMLODIPINE BESILATE [Suspect]
     Active Substance: AMLODIPINE BESYLATE
     Indication: COMPLEX REGIONAL PAIN SYNDROME
     Route: 065
  15. CAPSAICIN. [Suspect]
     Active Substance: CAPSAICIN
     Indication: COMPLEX REGIONAL PAIN SYNDROME
     Route: 061
  16. CLONIDINE. [Suspect]
     Active Substance: CLONIDINE
     Indication: COMPLEX REGIONAL PAIN SYNDROME
     Route: 065
  17. HYDROXYCHLOROQUINE SULFATE. [Suspect]
     Active Substance: HYDROXYCHLOROQUINE SULFATE
     Indication: COMPLEX REGIONAL PAIN SYNDROME
     Route: 065
  18. PALMIDROL [Suspect]
     Active Substance: PALMIDROL
     Indication: COMPLEX REGIONAL PAIN SYNDROME
     Route: 065
  19. VITAMIN C ASCORBIC ACID TAB 1000MG [Suspect]
     Active Substance: ASCORBIC ACID
     Indication: COMPLEX REGIONAL PAIN SYNDROME
     Route: 065
  20. APREMILAST [Suspect]
     Active Substance: APREMILAST
     Indication: COMPLEX REGIONAL PAIN SYNDROME
     Route: 065
  21. KETAMINE [Suspect]
     Active Substance: KETAMINE
     Indication: COMPLEX REGIONAL PAIN SYNDROME
     Route: 048
  22. MYCOPHENOLATE MOFETIL. [Suspect]
     Active Substance: MYCOPHENOLATE MOFETIL
     Indication: COMPLEX REGIONAL PAIN SYNDROME
     Route: 065
  23. N?ACETYLCYSTEINE [Suspect]
     Active Substance: ACETYLCYSTEINE
     Indication: COMPLEX REGIONAL PAIN SYNDROME
     Route: 065
  24. ANAKINRA [Suspect]
     Active Substance: ANAKINRA
     Indication: COMPLEX REGIONAL PAIN SYNDROME
     Route: 065
  25. AMITRIPTYLINE [Suspect]
     Active Substance: AMITRIPTYLINE
     Indication: COMPLEX REGIONAL PAIN SYNDROME
     Route: 065
  26. BUMETANIDE. [Suspect]
     Active Substance: BUMETANIDE
     Indication: COMPLEX REGIONAL PAIN SYNDROME
     Route: 065
  27. METOPROLOL TARTRATE. [Suspect]
     Active Substance: METOPROLOL TARTRATE
     Indication: COMPLEX REGIONAL PAIN SYNDROME
     Route: 065
  28. EZETIMIBE. [Concomitant]
     Active Substance: EZETIMIBE
     Indication: HYPERLIPIDAEMIA
     Route: 065
  29. DILTIAZEM. [Suspect]
     Active Substance: DILTIAZEM
     Indication: COMPLEX REGIONAL PAIN SYNDROME
     Route: 065
  30. ERELZI [Suspect]
     Active Substance: ETANERCEPT-SZZS
     Indication: COMPLEX REGIONAL PAIN SYNDROME
     Route: 065
  31. LIDOCAINE HYDROCHLORIDE. [Suspect]
     Active Substance: LIDOCAINE HYDROCHLORIDE
     Indication: COMPLEX REGIONAL PAIN SYNDROME
     Route: 061
  32. MAGNESIUM [Suspect]
     Active Substance: MAGNESIUM
     Indication: COMPLEX REGIONAL PAIN SYNDROME
     Route: 065
  33. PREGABALIN. [Suspect]
     Active Substance: PREGABALIN
     Indication: COMPLEX REGIONAL PAIN SYNDROME
     Route: 065

REACTIONS (21)
  - Insomnia [Recovered/Resolved]
  - Bone density decreased [Recovered/Resolved]
  - Purpura [Recovered/Resolved]
  - Fatigue [Recovered/Resolved]
  - Hyperlipidaemia [Recovered/Resolved]
  - Impaired quality of life [Recovered/Resolved]
  - Skin disorder [Recovered/Resolved]
  - Body tinea [Recovered/Resolved]
  - Cellulitis [Recovered/Resolved]
  - Inhibitory drug interaction [Recovered/Resolved]
  - Weight increased [Recovered/Resolved]
  - Contusion [Recovered/Resolved]
  - Infection susceptibility increased [Recovered/Resolved]
  - Poor quality sleep [Recovered/Resolved]
  - Oral herpes [Recovered/Resolved]
  - Herpes zoster [Recovered/Resolved]
  - Cataract [Recovered/Resolved]
  - Glucose tolerance impaired [Recovered/Resolved]
  - Hypertension [Recovered/Resolved]
  - Impaired work ability [Recovered/Resolved]
  - Drug ineffective [Recovered/Resolved]
